FAERS Safety Report 7248581-7 (Version None)
Quarter: 2011Q1

REPORT INFORMATION
  Report Type: 
  Country: None (occurrence: None)
  Receive Date: 20110128
  Receipt Date: 20101216
  Transmission Date: 20110831
  Serious: Yes (Other)
  Sender: FDA-Public Use
  Company Number: CH-BAYER-2010-005040

PATIENT
  Age: 61 Year
  Sex: Male
  Weight: 88 kg

DRUGS (6)
  1. ASPIRIN [Suspect]
     Indication: MYOCARDIAL ISCHAEMIA
     Dosage: DAILY DOSE 100 MG
     Route: 048
     Dates: start: 20100311
  2. SERTRALIN [Suspect]
     Indication: BIPOLAR DISORDER
     Dosage: DAILY DOSE 25 MG
     Route: 048
  3. PRAVASTATIN [Concomitant]
     Indication: MYOCARDIAL ISCHAEMIA
     Dosage: DAILY DOSE 40 MG
     Route: 048
     Dates: start: 20100311
  4. BILOL [Concomitant]
     Indication: MYOCARDIAL ISCHAEMIA
     Dosage: DAILY DOSE 2.5 MG
     Route: 048
     Dates: start: 20100311
  5. PRASUGREL [Suspect]
     Indication: MYOCARDIAL ISCHAEMIA
     Dosage: DAILY DOSE 10 MG
     Route: 048
     Dates: start: 20100311, end: 20101101
  6. RAMIPRIL [Concomitant]
     Indication: MYOCARDIAL ISCHAEMIA
     Dosage: DAILY DOSE 5 MG
     Route: 048
     Dates: start: 20100311

REACTIONS (2)
  - ECCHYMOSIS [None]
  - THROMBOCYTOPENIA [None]
